FAERS Safety Report 7329133-7 (Version None)
Quarter: 2011Q1

REPORT INFORMATION
  Report Type: 
  Country: None (occurrence: None)
  Receive Date: 20110303
  Receipt Date: 20110223
  Transmission Date: 20110831
  Serious: Yes (Hospitalization)
  Sender: FDA-Public Use
  Company Number: US-B.I. PHARMACEUTICALS,INC./RIDGEFIELD-2011-BP-04972BP

PATIENT
  Sex: Male

DRUGS (2)
  1. PLAVIX [Concomitant]
  2. PRADAXA [Suspect]

REACTIONS (2)
  - FALL [None]
  - EPISTAXIS [None]
